FAERS Safety Report 8619411 (Version 3)
Quarter: 2012Q4

REPORT INFORMATION
  Report Type: 
  Country: US (occurrence: US)
  Receive Date: 20120618
  Receipt Date: 20121218
  Transmission Date: 20130627
  Serious: Yes (Hospitalization)
  Sender: FDA-Public Use
  Company Number: US-BAYER-2012-058642

PATIENT
  Age: 45 Year
  Sex: Female
  Weight: 117.91 kg

DRUGS (5)
  1. YASMIN [Suspect]
     Indication: PREMENSTRUAL SYNDROME
     Dosage: UNK
     Dates: start: 200505, end: 20070508
  2. YASMIN [Suspect]
     Indication: MENSTRUAL CYCLE MANAGEMENT
  3. PROZAC [Concomitant]
     Indication: DEPRESSION
     Dosage: 20 mg, QD
     Route: 048
     Dates: start: 2001, end: 2012
  4. AMITRIPTYLINE [Concomitant]
     Dosage: 30 mg, HS
     Route: 048
  5. ANAPROX DS [Concomitant]
     Indication: ANKLE FRACTURE
     Dosage: UNK
     Dates: start: 20070322

REACTIONS (20)
  - Pulmonary embolism [None]
  - Deep vein thrombosis [None]
  - Venous thrombosis limb [None]
  - Venous injury [None]
  - Deep vein thrombosis [None]
  - Deep vein thrombosis [None]
  - Pelvic venous thrombosis [None]
  - Thrombophlebitis superficial [None]
  - Vena cava thrombosis [None]
  - Pain [None]
  - Injury [None]
  - Emotional distress [None]
  - Anxiety [None]
  - General physical health deterioration [None]
  - Anhedonia [None]
  - Pain in extremity [None]
  - Hypoaesthesia [None]
  - Post thrombotic syndrome [None]
  - Impaired work ability [None]
  - Off label use [None]
